FAERS Safety Report 20657891 (Version 2)
Quarter: 2022Q2

REPORT INFORMATION
  Report Type: Spontaneous
  Country: US (occurrence: US)
  Receive Date: 20220331
  Receipt Date: 20220421
  Transmission Date: 20220721
  Serious: No
  Sender: FDA-Public Use
  Company Number: US-JNJFOC-20220351305

PATIENT
  Age: 66 Year
  Sex: Male
  Weight: 92.162 kg

DRUGS (1)
  1. XARELTO [Suspect]
     Active Substance: RIVAROXABAN
     Indication: Deep vein thrombosis
     Dosage: APPROXIMATE TOTAL NUMBER OF DOSES PATIENT RECEIVED - 23
     Route: 048
     Dates: start: 20220311, end: 20220323

REACTIONS (2)
  - Hypersensitivity [Unknown]
  - Dyspepsia [Recovered/Resolved]

NARRATIVE: CASE EVENT DATE: 20220312
